FAERS Safety Report 6716427-9 (Version None)
Quarter: 2010Q2

REPORT INFORMATION
  Report Type: 
  Country: None (occurrence: None)
  Receive Date: 20100507
  Receipt Date: 20100426
  Transmission Date: 20101027
  Serious: Yes (Other)
  Sender: FDA-Public Use
  Company Number: US-MYLANLABS-2010S1007343

PATIENT
  Age: 58 Year
  Sex: Female
  Weight: 95.03 kg

DRUGS (8)
  1. AMLODIPINE BESYLATE [Suspect]
     Route: 048
     Dates: start: 20100108
  2. DOUBLE BLINDED STUDY MEDICATION [Suspect]
     Indication: HYPERTENSION
     Route: 048
     Dates: start: 20091028, end: 20100304
  3. METFORMIN [Concomitant]
     Indication: TYPE 2 DIABETES MELLITUS
     Route: 048
     Dates: start: 20100105
  4. GLIMEPIRIDE [Concomitant]
     Indication: TYPE 2 DIABETES MELLITUS
     Route: 048
     Dates: start: 20081129
  5. LISINOPRIL [Concomitant]
     Indication: HYPERTENSION
     Route: 048
     Dates: start: 20091015
  6. GLUCOSAMINE [Concomitant]
     Indication: SUPPLEMENTATION THERAPY
     Route: 048
     Dates: start: 20080701
  7. IBUPROFEN [Concomitant]
     Indication: OSTEOARTHRITIS
     Route: 048
     Dates: start: 20070101
  8. ADVIL PM /05810501/ [Concomitant]
     Indication: OSTEOARTHRITIS
     Route: 048
     Dates: start: 20070601

REACTIONS (2)
  - BREAST CANCER [None]
  - BREAST CANCER METASTATIC [None]
